FAERS Safety Report 24288612 (Version 3)
Quarter: 2024Q4

REPORT INFORMATION
  Report Type: Report from Study
  Country: US (occurrence: US)
  Receive Date: 20240906
  Receipt Date: 20241126
  Transmission Date: 20250115
  Serious: No
  Sender: Day One Biopharmaceuticals
  Company Number: US-DAY ONE BIOPHARMACEUTICALS, INC.-2024US000711

PATIENT

DRUGS (2)
  1. OJEMDA [Suspect]
     Active Substance: TOVORAFENIB
     Indication: Brain neoplasm malignant
     Dosage: 600 MG
     Route: 065
     Dates: start: 2024
  2. OJEMDA [Suspect]
     Active Substance: TOVORAFENIB
     Dosage: 100 MG, SINGLE
     Route: 048
     Dates: start: 20240826, end: 20240826

REACTIONS (3)
  - Accidental underdose [Recovered/Resolved]
  - Feeling jittery [Unknown]
  - Insomnia [Unknown]

NARRATIVE: CASE EVENT DATE: 20240101
